FAERS Safety Report 9701187 (Version 1)
Quarter: 2013Q4

REPORT INFORMATION
  Report Type: Spontaneous
  Country: US (occurrence: US)
  Receive Date: 20131121
  Receipt Date: 20131121
  Transmission Date: 20140711
  Serious: No
  Sender: FDA-Public Use
  Company Number: US-GILEAD-2008-0016000

PATIENT
  Age: 48 Year
  Sex: Female

DRUGS (10)
  1. LETAIRIS [Suspect]
     Indication: PULMONARY ARTERIAL HYPERTENSION
     Route: 048
     Dates: start: 20080306
  2. HYDROXYCHLOROQUINE [Concomitant]
  3. NYSTATIN [Concomitant]
  4. PREDNISOLONE [Concomitant]
  5. CELLCEPT [Concomitant]
  6. BACTRIM [Concomitant]
  7. COUMADIN [Concomitant]
  8. LISINOPRIL [Concomitant]
  9. CITRANATAL [Concomitant]
  10. OMEPRAZOLE [Concomitant]

REACTIONS (2)
  - Flank pain [Not Recovered/Not Resolved]
  - Headache [Recovered/Resolved]
